FAERS Safety Report 18386231 (Version 4)
Quarter: 2020Q4

REPORT INFORMATION
  Report Type: Spontaneous
  Country: US (occurrence: US)
  Receive Date: 20201015
  Receipt Date: 20201224
  Transmission Date: 20210114
  Serious: No
  Sender: FDA-Public Use
  Company Number: US-GLAXOSMITHKLINE-US2020AMR204499

PATIENT
  Sex: Female

DRUGS (3)
  1. ZEJULA [Suspect]
     Active Substance: NIRAPARIB
     Indication: OVARIAN CANCER
     Dosage: 100 MG, QD
     Route: 048
     Dates: start: 20200927
  2. ZEJULA [Suspect]
     Active Substance: NIRAPARIB
     Dosage: 200 MG, QD
     Route: 048
     Dates: start: 20201016
  3. ZEJULA [Suspect]
     Active Substance: NIRAPARIB
     Dosage: 100 MG, QD

REACTIONS (17)
  - Lip discolouration [Unknown]
  - Dysgeusia [Recovered/Resolved]
  - Dyspepsia [Unknown]
  - Carbohydrate antigen 125 increased [Unknown]
  - Palpitations [Not Recovered/Not Resolved]
  - Nausea [Unknown]
  - Insomnia [Not Recovered/Not Resolved]
  - Constipation [Unknown]
  - Fatigue [Unknown]
  - Dyspnoea exertional [Unknown]
  - Blood test abnormal [Recovered/Resolved]
  - Off label use [Unknown]
  - Stomatitis [Recovered/Resolved]
  - Scan abnormal [Unknown]
  - Gastrooesophageal reflux disease [Unknown]
  - Nightmare [Unknown]
  - Abdominal pain upper [Not Recovered/Not Resolved]
